FAERS Safety Report 24121714 (Version 1)
Quarter: 2024Q3

REPORT INFORMATION
  Report Type: Spontaneous
  Country: ZA (occurrence: None)
  Receive Date: 20240722
  Receipt Date: 20240722
  Transmission Date: 20241017
  Serious: Yes (Death)
  Sender: ASTRAZENECA
  Company Number: 2024A164170

PATIENT
  Age: 62 Year
  Sex: Male

DRUGS (3)
  1. BUDESONIDE\FORMOTEROL [Suspect]
     Active Substance: BUDESONIDE\FORMOTEROL
     Indication: Asthma
     Dosage: 160 UG/INHAL AND UNKNOWN FREQUENCY UNKNOWN
     Route: 055
  2. AMLODIPINE BESYLATE [Concomitant]
     Active Substance: AMLODIPINE BESYLATE
     Indication: Hypertension
     Route: 048
  3. ACETAMINOPHEN\CAFFEINE\CODEINE\DOXYLAMINE [Concomitant]
     Active Substance: ACETAMINOPHEN\CAFFEINE\CODEINE\DOXYLAMINE
     Route: 048

REACTIONS (1)
  - Gastrointestinal disorder [Fatal]
